FAERS Safety Report 4300431-4 (Version None)
Quarter: 2004Q1

REPORT INFORMATION
  Report Type: 
  Country: None (occurrence: None)
  Receive Date: 20040218
  Receipt Date: 20040211
  Transmission Date: 20041129
  Serious: Yes (Hospitalization)
  Sender: FDA-Public Use
  Company Number: FRWYE574811FEB04

PATIENT
  Age: 58 Year
  Sex: Male

DRUGS (7)
  1. OXAZEPAM [Suspect]
     Dosage: 10 MG 1X PER 1 DAY
     Route: 048
     Dates: start: 20031210
  2. ATARAX [Suspect]
     Dosage: 25 MG 1X PER 1 DAY
     Route: 048
     Dates: start: 20031208
  3. CORDARONE [Suspect]
     Dosage: 200 MG 2X PER 1 DAY
     Route: 048
     Dates: start: 20031212, end: 20031226
  4. DIGOXIN [Suspect]
     Dates: start: 20031212, end: 20031215
  5. FRAXIPARINE (HEPARIN-FRACTION, CALCIUM SALT) [Suspect]
     Dosage: 7500 UNIT 1X PER 1 DAY
     Route: 058
     Dates: start: 20031208
  6. FOLIC ACID [Suspect]
     Dosage: 1 DOSE 1X PER 1 DAY
     Route: 048
     Dates: start: 20031210
  7. VITAMIN B1 AND B6 (PYRIDOXINE/THIAMINE) [Suspect]
     Dates: start: 20031210, end: 20031226

REACTIONS (2)
  - ERYTHEMA [None]
  - RASH PRURITIC [None]
